FAERS Safety Report 5176669-3 (Version None)
Quarter: 2006Q4

REPORT INFORMATION
  Report Type: 
  Country: None (occurrence: None)
  Receive Date: 20061216
  Receipt Date: 20061205
  Transmission Date: 20070319
  Serious: Yes (Death, Congenital Anomaly, Other)
  Sender: FDA-Public Use
  Company Number: FR-ABBOTT-06P-056-0352612-00

PATIENT
  Sex: Male

DRUGS (1)
  1. DEPAKENE [Suspect]
     Indication: DRUG EXPOSURE DURING PREGNANCY

REACTIONS (3)
  - ABORTION INDUCED [None]
  - MENINGOMYELOCELE [None]
  - MICROCEPHALY [None]
